FAERS Safety Report 9156934 (Version 4)
Quarter: 2013Q2

REPORT INFORMATION
  Report Type: Report from Study
  Country: JP (occurrence: JP)
  Receive Date: 20130312
  Receipt Date: 20130625
  Transmission Date: 20140414
  Serious: Yes (Death, Other)
  Sender: FDA-Public Use
  Company Number: PHHY2013JP023778

PATIENT
  Age: 60 Year
  Sex: Male
  Weight: 100 kg

DRUGS (4)
  1. TASIGNA [Suspect]
     Indication: CHRONIC MYELOID LEUKAEMIA
     Dosage: 600 MG, QD
     Route: 048
     Dates: start: 20120806
  2. SELBEX [Suspect]
     Indication: GASTRITIS
     Dosage: 2 DF (2 50 MG CAPSULES DAILY)
     Route: 048
     Dates: start: 20090615
  3. PREDONINE [Suspect]
     Indication: DRUG ERUPTION
     Dosage: 5 MG DAILY
     Route: 048
     Dates: start: 20090615
  4. MAGMITT [Suspect]
     Indication: CONSTIPATION
     Dosage: 3 DF, (3 330MG TABLETS DAILY)
     Route: 048
     Dates: start: 20120702

REACTIONS (4)
  - Sudden cardiac death [Fatal]
  - Cardio-respiratory arrest [Unknown]
  - Pericardial haemorrhage [Not Recovered/Not Resolved]
  - Syncope [Unknown]
